FAERS Safety Report 10870333 (Version 2)
Quarter: 2015Q2

REPORT INFORMATION
  Report Type: Spontaneous
  Country: GR (occurrence: GR)
  Receive Date: 20150226
  Receipt Date: 20150529
  Transmission Date: 20150821
  Serious: Yes (Hospitalization)
  Sender: FDA-Public Use
  Company Number: PHHY2015GR018763

PATIENT
  Age: 75 Year
  Sex: Male

DRUGS (4)
  1. CLARITHROMYCIN. [Suspect]
     Active Substance: CLARITHROMYCIN
     Indication: PYREXIA
     Dosage: 1000 MG, QD
     Route: 065
  2. CLARITHROMYCIN. [Suspect]
     Active Substance: CLARITHROMYCIN
     Dosage: 500 MG, Q12H
     Route: 065
  3. QUETIAPINE [Suspect]
     Active Substance: QUETIAPINE
     Indication: INSOMNIA
     Dosage: 125 MG, QD
     Route: 065
  4. QUETIAPINE [Suspect]
     Active Substance: QUETIAPINE
     Indication: ABNORMAL BEHAVIOUR

REACTIONS (11)
  - Coordination abnormal [Recovering/Resolving]
  - Stupor [Recovering/Resolving]
  - Muscle rigidity [Recovering/Resolving]
  - Leukocytosis [Recovering/Resolving]
  - Altered state of consciousness [Recovering/Resolving]
  - Hyperhidrosis [Recovering/Resolving]
  - Neuroleptic malignant syndrome [Recovering/Resolving]
  - Abasia [Recovering/Resolving]
  - Pyrexia [Recovering/Resolving]
  - Electrolyte imbalance [Recovering/Resolving]
  - Drug ineffective [Unknown]
